FAERS Safety Report 7966033-3 (Version None)
Quarter: 2011Q4

REPORT INFORMATION
  Report Type: 
  Country: None (occurrence: None)
  Receive Date: 20111208
  Receipt Date: 20111205
  Transmission Date: 20120403
  Serious: No
  Sender: FDA-Public Use
  Company Number: US-PFIZER INC-2011296775

PATIENT
  Sex: Female
  Weight: 72.562 kg

DRUGS (4)
  1. WELLBUTRIN [Concomitant]
     Indication: DEPRESSION
     Dosage: 450 MG, 1X/DAY
     Route: 048
  2. EFFEXOR [Suspect]
     Indication: DEPRESSION
     Dosage: 150 MG, 1X/DAY
     Dates: end: 20111101
  3. XANAX [Concomitant]
     Indication: ANXIETY
     Dosage: 0.5 MG, AS NEEDED
  4. EFFEXOR [Suspect]
     Indication: ANXIETY

REACTIONS (5)
  - TINNITUS [None]
  - DYSPNOEA [None]
  - DIZZINESS [None]
  - TREMOR [None]
  - BALANCE DISORDER [None]
